FAERS Safety Report 4725961-2 (Version None)
Quarter: 2005Q3

REPORT INFORMATION
  Report Type: 
  Country: None (occurrence: None)
  Receive Date: 20050727
  Receipt Date: 20041203
  Transmission Date: 20060218
  Serious: Yes (Other)
  Sender: FDA-Public Use
  Company Number: GB-GLAXOSMITHKLINE-B0359673A

PATIENT
  Sex: Female

DRUGS (1)
  1. SEROXAT [Suspect]
     Indication: DEPRESSION
     Dosage: 20MG PER DAY
     Route: 065
     Dates: start: 19980901

REACTIONS (10)
  - ABNORMAL BEHAVIOUR [None]
  - BIPOLAR DISORDER [None]
  - COMPLETED SUICIDE [None]
  - DRUG ABUSER [None]
  - HYPOMANIA [None]
  - ILL-DEFINED DISORDER [None]
  - INSOMNIA [None]
  - OVERDOSE [None]
  - SUICIDE ATTEMPT [None]
  - TREATMENT NONCOMPLIANCE [None]
